FAERS Safety Report 11529066 (Version 1)
Quarter: 2015Q3

REPORT INFORMATION
  Report Type: Spontaneous
  Country: IN (occurrence: IN)
  Receive Date: 20150921
  Receipt Date: 20150921
  Transmission Date: 20151125
  Serious: Yes (Other)
  Sender: FDA-Public Use
  Company Number: IN-DRREDDYS-USA/IND/15/0050662

PATIENT
  Age: 51 Year
  Sex: Male

DRUGS (3)
  1. ATORVASTATIN [Suspect]
     Active Substance: ATORVASTATIN
     Indication: BLOOD CHOLESTEROL INCREASED
     Route: 065
  2. ATORVASTATIN [Suspect]
     Active Substance: ATORVASTATIN
     Indication: LOW DENSITY LIPOPROTEIN INCREASED
  3. LEVOTHYROXINE. [Suspect]
     Active Substance: LEVOTHYROXINE
     Indication: HYPOTHYROIDISM
     Route: 065

REACTIONS (3)
  - Compartment syndrome [Unknown]
  - Peroneal nerve palsy [Unknown]
  - Rhabdomyolysis [Unknown]
